FAERS Safety Report 16867248 (Version 1)
Quarter: 2019Q4

REPORT INFORMATION
  Report Type: Spontaneous
  Country: US (occurrence: US)
  Receive Date: 20190929
  Receipt Date: 20190929
  Transmission Date: 20200122
  Serious: Yes (Life-Threatening, Other)
  Sender: FDA-Public Use
  Company Number: None

PATIENT
  Age: 44 Year
  Sex: Female
  Weight: 58.5 kg

DRUGS (8)
  1. KLONOPIN [Concomitant]
     Active Substance: CLONAZEPAM
  2. LO-LESTRIN [Concomitant]
  3. CORTISONE INJECTION [Suspect]
     Active Substance: HYDROCORTISONE
     Indication: ARTHRALGIA
     Route: 008
  4. LIOTHYRININE [Concomitant]
  5. LEVOTHYROXINE. [Concomitant]
     Active Substance: LEVOTHYROXINE
  6. CORTISONE INJECTION [Suspect]
     Active Substance: HYDROCORTISONE
     Indication: BACK PAIN
     Route: 008
  7. ZOLOFT [Concomitant]
     Active Substance: SERTRALINE HYDROCHLORIDE
  8. MULTIVITAMIN [Concomitant]
     Active Substance: VITAMINS

REACTIONS (7)
  - Affect lability [None]
  - Panic attack [None]
  - Fear [None]
  - Acute psychosis [None]
  - Visual impairment [None]
  - Crying [None]
  - Tachyphrenia [None]

NARRATIVE: CASE EVENT DATE: 20190725
